FAERS Safety Report 6442465-X (Version None)
Quarter: 2009Q4

REPORT INFORMATION
  Report Type: 
  Country: None (occurrence: None)
  Receive Date: 20091117
  Receipt Date: 20091104
  Transmission Date: 20100525
  Serious: Yes (Death)
  Sender: FDA-Public Use
  Company Number: GB-RANBAXY-2009RR-28980

PATIENT
  Age: 45 Year
  Sex: Female

DRUGS (6)
  1. AMITRIPTYLINE HCL [Suspect]
  2. CODEINE [Suspect]
  3. ORAMORPH SR [Suspect]
  4. OXYNORM [Suspect]
  5. PARACETAMOL [Suspect]
  6. TRAMADOL HCL [Suspect]

REACTIONS (1)
  - DRUG TOXICITY [None]
